FAERS Safety Report 25818079 (Version 2)
Quarter: 2025Q3

REPORT INFORMATION
  Report Type: Report from Study
  Country: IN (occurrence: US)
  Receive Date: 20250918
  Receipt Date: 20250926
  Transmission Date: 20251021
  Serious: Yes (Hospitalization)
  Sender: PFIZER
  Company Number: IN-PFIZER INC-202500181768

PATIENT
  Sex: Male

DRUGS (10)
  1. METHOTREXATE SODIUM [Suspect]
     Active Substance: METHOTREXATE SODIUM
     Indication: Central nervous system lymphoma
     Dates: start: 20240509, end: 20240509
  2. METHOTREXATE SODIUM [Suspect]
     Active Substance: METHOTREXATE SODIUM
     Dates: start: 20230612, end: 20230612
  3. METHOTREXATE SODIUM [Suspect]
     Active Substance: METHOTREXATE SODIUM
     Dates: start: 20230726, end: 20230726
  4. TIRABRUTINIB [Suspect]
     Active Substance: TIRABRUTINIB
     Dates: start: 20240509, end: 20240513
  5. TIRABRUTINIB [Suspect]
     Active Substance: TIRABRUTINIB
     Dates: start: 20240515
  6. TIRABRUTINIB [Suspect]
     Active Substance: TIRABRUTINIB
     Dates: start: 20230612, end: 20230730
  7. RITUXIMAB [Suspect]
     Active Substance: RITUXIMAB
     Dates: start: 20240510, end: 20240510
  8. RITUXIMAB [Suspect]
     Active Substance: RITUXIMAB
     Dates: start: 20230614, end: 20230719
  9. TEMOZOLOMIDE [Suspect]
     Active Substance: TEMOZOLOMIDE
     Dates: start: 20240517, end: 20240521
  10. TEMOZOLOMIDE [Suspect]
     Active Substance: TEMOZOLOMIDE
     Dates: start: 20230618, end: 20230815

REACTIONS (8)
  - Acute kidney injury [Recovered/Resolved]
  - Drug level increased [Recovered/Resolved]
  - Fatigue [Recovered/Resolved]
  - Body temperature increased [Recovered/Resolved]
  - Malaise [Recovered/Resolved]
  - Abdominal pain lower [Recovered/Resolved]
  - Urinary tract infection [Recovered/Resolved]
  - Abscess [Recovered/Resolved]

NARRATIVE: CASE EVENT DATE: 20230809
